FAERS Safety Report 7327828-2 (Version None)
Quarter: 2011Q1

REPORT INFORMATION
  Report Type: 
  Country: None (occurrence: None)
  Receive Date: 20110303
  Receipt Date: 20110228
  Transmission Date: 20110831
  Serious: No
  Sender: FDA-Public Use
  Company Number: US-PFIZER INC-2011043921

PATIENT
  Age: 69 Year
  Sex: Female
  Weight: 60.317 kg

DRUGS (3)
  1. SYNTHROID [Concomitant]
     Indication: THYROID DISORDER
     Dosage: UNK
  2. ADVIL PM [Suspect]
     Indication: INSOMNIA
  3. ADVIL PM [Suspect]
     Indication: HEADACHE
     Dosage: UNK
     Route: 048
     Dates: start: 20110227

REACTIONS (4)
  - INSOMNIA [None]
  - FEELING ABNORMAL [None]
  - ASTHENOPIA [None]
  - RESTLESS LEGS SYNDROME [None]
